FAERS Safety Report 8765657 (Version 1)
Quarter: 2012Q4

REPORT INFORMATION
  Report Type: Report from Study
  Country: JP (occurrence: JP)
  Receive Date: 20120904
  Receipt Date: 20120904
  Transmission Date: 20130627
  Serious: Yes (Other)
  Sender: FDA-Public Use
  Company Number: JP-JNJFOC-20120811396

PATIENT
  Age: 46 Year
  Sex: Male

DRUGS (5)
  1. INVEGA [Suspect]
     Indication: SCHIZOPHRENIA, DISORGANISED TYPE
     Route: 048
     Dates: start: 20120302, end: 20120509
  2. INVEGA [Suspect]
     Indication: SCHIZOPHRENIA, DISORGANISED TYPE
     Route: 048
     Dates: start: 20111104, end: 20120301
  3. RISPERIDONE [Suspect]
     Indication: SCHIZOPHRENIA, DISORGANISED TYPE
     Route: 048
     Dates: start: 20110901, end: 20111103
  4. ZESTROMIN [Concomitant]
     Indication: SCHIZOPHRENIA, DISORGANISED TYPE
     Route: 048
  5. LEMONAMIN [Concomitant]
     Indication: SCHIZOPHRENIA, DISORGANISED TYPE
     Route: 048

REACTIONS (2)
  - Blood glucose increased [Unknown]
  - Somnolence [Not Recovered/Not Resolved]
